FAERS Safety Report 9927409 (Version 3)
Quarter: 2014Q2

REPORT INFORMATION
  Report Type: Report from Study
  Country: JP (occurrence: JP)
  Receive Date: 20140226
  Receipt Date: 20140429
  Transmission Date: 20141212
  Serious: Yes (Hospitalization)
  Sender: FDA-Public Use
  Company Number: PHHY2013JP092628

PATIENT
  Age: 41 Year
  Sex: Female

DRUGS (12)
  1. FTY 720 [Suspect]
     Indication: MULTIPLE SCLEROSIS
     Dosage: 0.5 MG, QD
     Route: 048
     Dates: start: 20130213, end: 20130414
  2. FTY 720 [Suspect]
     Dosage: 0.5 MG, QD
     Route: 048
     Dates: start: 20130415, end: 20130821
  3. FTY 720 [Suspect]
     Dosage: 0.5 MG, QOD
     Route: 048
     Dates: start: 20130827
  4. PAXIL//PAROXETINE HYDROCHLORIDE [Concomitant]
     Dosage: 10 MG, UNK
     Route: 048
     Dates: start: 20130805, end: 20130821
  5. LOXONIN [Concomitant]
     Dosage: 60 MG, PRN
     Route: 048
  6. PARIET [Concomitant]
     Dosage: 10 MG, UNK
     Route: 048
  7. BIOFERMIN [Concomitant]
     Dosage: 1 G, UNK
     Route: 048
  8. VITAMEDIN CAPSULE [Concomitant]
     Dosage: 3 DF, UNK
     Route: 048
  9. DEPAS [Concomitant]
     Dosage: 0.5 MG, UNK
     Route: 048
  10. DOGMATYL [Concomitant]
     Dosage: 50 MG, UNK
     Route: 048
     Dates: end: 20130804
  11. DOMPERIDONE [Concomitant]
     Dosage: 10 MG, PRN
     Route: 048
  12. MYSLEE [Concomitant]
     Dosage: 5 MG, PRN
     Route: 048

REACTIONS (3)
  - Radial nerve palsy [Recovered/Resolved]
  - Herpes zoster [Recovered/Resolved]
  - Nausea [Not Recovered/Not Resolved]
